FAERS Safety Report 6551583-7 (Version None)
Quarter: 2010Q1

REPORT INFORMATION
  Report Type: 
  Country: None (occurrence: None)
  Receive Date: 20100126
  Receipt Date: 20100115
  Transmission Date: 20100710
  Serious: Yes (Death)
  Sender: FDA-Public Use
  Company Number: NL-JNJFOC-20100107516

PATIENT
  Age: 66 Year
  Sex: Female

DRUGS (2)
  1. REMICADE [Suspect]
     Indication: SWEAT GLAND INFECTION
     Route: 042
  2. REMICADE [Suspect]
     Route: 042

REACTIONS (5)
  - DEATH [None]
  - MALAISE [None]
  - POST PROCEDURAL HAEMORRHAGE [None]
  - SURGERY [None]
  - SYNCOPE [None]
